FAERS Safety Report 8152995-0 (Version None)
Quarter: 2012Q1

REPORT INFORMATION
  Report Type: 
  Country: None (occurrence: None)
  Receive Date: 20120221
  Receipt Date: 20120217
  Transmission Date: 20120608
  Serious: No
  Sender: FDA-Public Use
  Company Number: US-PFIZER INC-2012040121

PATIENT
  Sex: Female
  Weight: 67.574 kg

DRUGS (26)
  1. CHANTIX [Suspect]
     Indication: SMOKING CESSATION THERAPY
     Dosage: 0.5 MG, 1X/DAY
     Route: 048
     Dates: start: 20120206, end: 20120201
  2. CHANTIX [Suspect]
     Dosage: UNK
     Route: 048
     Dates: start: 20120201, end: 20120201
  3. SYNTHROID [Concomitant]
     Indication: THYROID DISORDER
     Dosage: 50 UG, UNK
  4. MULTI-VITAMINS [Concomitant]
     Dosage: UNK
  5. PREVIDENT [Concomitant]
     Indication: TOOTH DISORDER
     Dosage: UNK
  6. CHANTIX [Suspect]
     Dosage: 1 MG, 2X/DAY
     Route: 048
     Dates: start: 20120201
  7. COMBIVENT [Concomitant]
     Indication: ASTHMA
     Dosage: UNK, 1X/DAY
     Route: 055
  8. HYDROXYZINE [Concomitant]
     Indication: SLEEP DISORDER
     Dosage: 10 MG, 2X/DAY AS NEEDED
     Route: 048
  9. TIZANIDINE [Concomitant]
     Indication: BACK DISORDER
     Dosage: 4 MG, 3X/DAY
  10. ONDANSETRON [Concomitant]
     Indication: GASTROINTESTINAL DISORDER
     Dosage: 8 MG, 4X/DAY
  11. TEMAZEPAM [Concomitant]
     Indication: SLEEP DISORDER
     Dosage: 30 MG, 1X/DAY
  12. MORPHINE [Concomitant]
     Dosage: 4 MG, UNK
  13. ACIPHEX [Concomitant]
     Indication: GASTROINTESTINAL DISORDER
     Dosage: 20 MG, 2X/DAY
     Route: 048
  14. CENTRUM SILVER ULTRA WOMENS [Concomitant]
     Dosage: UNK, 1X/DAY
  15. NASONEX [Concomitant]
     Indication: ASTHMA
     Dosage: UNK
  16. AMLODIPINE [Concomitant]
     Indication: HYPERTENSION
     Dosage: 2.5 MG, 1X/DAY
     Route: 048
  17. GAS-X [Concomitant]
     Dosage: UNK,2X/DAY
     Route: 048
  18. SIMVASTATIN [Concomitant]
     Indication: BLOOD CHOLESTEROL INCREASED
     Dosage: 200 MG, UNK
  19. SUDAFED 12 HOUR [Concomitant]
     Indication: HYPERSENSITIVITY
     Dosage: UNK, 1X/DAY
     Route: 048
  20. AVINZA [Concomitant]
     Indication: BACK DISORDER
     Dosage: 60 MG, 2X/DAY
     Route: 048
  21. CELEBREX [Concomitant]
     Indication: ARTHRITIS
     Dosage: 200 MG, 1X/DAY
     Route: 048
  22. NAMENDA [Concomitant]
     Indication: DEMENTIA ALZHEIMER'S TYPE
     Dosage: UNK
  23. CALTRATE 600+D [Concomitant]
     Dosage: UNK, 1X/DAY
  24. EXELON [Concomitant]
     Indication: DEMENTIA ALZHEIMER'S TYPE
     Dosage: 9.5 MG, UNK
  25. SPIRIVA [Concomitant]
     Indication: ASTHMA
     Dosage: 18 UG, 1X/DAY
  26. XALATAN [Concomitant]
     Indication: GLAUCOMA
     Dosage: UNK

REACTIONS (6)
  - MOOD ALTERED [None]
  - DYSPNOEA [None]
  - AGITATION [None]
  - ANGER [None]
  - FRUSTRATION [None]
  - ABNORMAL DREAMS [None]
